FAERS Safety Report 9181391 (Version 2)
Quarter: 2013Q2

REPORT INFORMATION
  Report Type: Spontaneous
  Country: US (occurrence: US)
  Receive Date: 20130322
  Receipt Date: 20130517
  Transmission Date: 20140414
  Serious: Yes (Other)
  Sender: FDA-Public Use
  Company Number: US-BAYER-2013-032044

PATIENT
  Age: 21 Year
  Sex: Female

DRUGS (12)
  1. BEYAZ [Suspect]
  2. IBUPROFEN [IBUPROFEN] [Concomitant]
     Dosage: 800 MG, UNK
     Route: 048
     Dates: start: 20110629
  3. IBUPROFEN [IBUPROFEN] [Concomitant]
     Dosage: 800 MG
     Dates: start: 20110807
  4. IBUPROFEN [IBUPROFEN] [Concomitant]
     Dosage: 800 MG, UNK
     Dates: start: 20110825
  5. AMOXICILLIN [Concomitant]
     Dosage: 500 MG, UNK
     Route: 048
     Dates: start: 20110707
  6. AMOXICILLIN [Concomitant]
     Dosage: 500 MG, UNK
     Dates: start: 20110708
  7. AMOXICILLIN [Concomitant]
     Dosage: 500 MG, UNK
     Dates: start: 20110728
  8. NAPROXEN [Concomitant]
     Dosage: 500 MG, UNK
     Route: 048
     Dates: start: 20110708
  9. NAPROXEN [Concomitant]
     Dosage: 500 MG, UNK
     Dates: start: 20110728
  10. HYDROCODONE W/ACETAMINOPHEN [Concomitant]
     Dosage: UNK
     Route: 048
     Dates: start: 20110708
  11. HYDROCODONE W/ACETAMINOPHEN [Concomitant]
     Dosage: UNK
     Dates: start: 20110728
  12. PROGESTERONE [Concomitant]
     Dosage: 200 MG, UNK
     Route: 048
     Dates: start: 20110608

REACTIONS (1)
  - Thrombophlebitis superficial [None]
